FAERS Safety Report 9016503 (Version 1)
Quarter: 2013Q1

REPORT INFORMATION
  Report Type: Spontaneous
  Country: US (occurrence: GB)
  Receive Date: 20130116
  Receipt Date: 20130116
  Transmission Date: 20140127
  Serious: Yes (Other)
  Sender: FDA-Public Use
  Company Number: US-ABBOTT-13P-163-1035712-00

PATIENT
  Sex: Female

DRUGS (4)
  1. HUMIRA [Suspect]
     Indication: CROHN^S DISEASE
     Dates: start: 2008
  2. UNKNOWN PAIN MEDS [Suspect]
     Indication: PRODUCT USED FOR UNKNOWN INDICATION
  3. STEROIDS [Concomitant]
     Indication: CROHN^S DISEASE
  4. PARACETAMOL [Concomitant]
     Indication: PRODUCT USED FOR UNKNOWN INDICATION

REACTIONS (14)
  - Proctocolectomy [Unknown]
  - Nausea [Unknown]
  - Wound complication [Unknown]
  - Injection site rash [Unknown]
  - Weight decreased [Unknown]
  - Depression [Unknown]
  - Pyrexia [Unknown]
  - Crohn^s disease [Unknown]
  - Anal skin tags [Unknown]
  - Anal stenosis [Unknown]
  - Anal fissure [Unknown]
  - Insomnia [Unknown]
  - Colitis [Unknown]
  - Rectal haemorrhage [None]
